FAERS Safety Report 4871561-3 (Version None)
Quarter: 2006Q1

REPORT INFORMATION
  Report Type: 
  Country: None (occurrence: None)
  Receive Date: 20060104
  Receipt Date: 20051223
  Transmission Date: 20060701
  Serious: Yes (Death, Hospitalization, Other)
  Sender: FDA-Public Use
  Company Number: NSADSS2002004249

PATIENT
  Sex: Female

DRUGS (9)
  1. REMICADE [Suspect]
     Route: 041
     Dates: start: 20010709, end: 20011022
  2. REMICADE [Suspect]
     Route: 041
     Dates: start: 20010709, end: 20011022
  3. REMICADE [Suspect]
     Route: 041
     Dates: start: 20010709, end: 20011022
  4. REMICADE [Suspect]
     Route: 041
     Dates: start: 20010709, end: 20011022
  5. METHOTREXATE [Concomitant]
     Route: 065
  6. ACESISTEM [Concomitant]
     Route: 065
  7. ACESISTEM [Concomitant]
     Route: 065
  8. NORVASC [Concomitant]
     Route: 065
  9. FOLIC ACID [Concomitant]
     Route: 065

REACTIONS (2)
  - DEATH [None]
  - LUNG NEOPLASM MALIGNANT [None]
